FAERS Safety Report 9204337 (Version 1)
Quarter: 2013Q2

REPORT INFORMATION
  Report Type: Report from Study
  Country: JP (occurrence: JP)
  Receive Date: 20130402
  Receipt Date: 20130402
  Transmission Date: 20140414
  Serious: Yes (Hospitalization, Other)
  Sender: FDA-Public Use
  Company Number: JP-B.I. PHARMACEUTICALS,INC./RIDGEFIELD-2013-BI-08590GD

PATIENT
  Age: 76 Year
  Sex: Male
  Weight: 50 kg

DRUGS (2)
  1. PRADAXA [Suspect]
     Indication: ATRIAL FIBRILLATION
     Dosage: 220 MG
     Route: 048
     Dates: start: 2011, end: 201204
  2. ASPIRIN [Concomitant]
     Dosage: 100 MG
     Route: 065

REACTIONS (4)
  - Cerebral infarction [Unknown]
  - Pelvic fracture [Unknown]
  - Shock haemorrhagic [Unknown]
  - Fall [Unknown]
